FAERS Safety Report 6158443-4 (Version None)
Quarter: 2009Q2

REPORT INFORMATION
  Report Type: 
  Country: None (occurrence: None)
  Receive Date: 20090417
  Receipt Date: 20090415
  Transmission Date: 20091009
  Serious: Yes (Hospitalization)
  Sender: FDA-Public Use
  Company Number: DE-BRISTOL-MYERS SQUIBB COMPANY-13889498

PATIENT
  Age: 73 Year
  Sex: Female
  Weight: 44 kg

DRUGS (3)
  1. CETUXIMAB [Suspect]
     Indication: NON-SMALL CELL LUNG CANCER
     Dosage: MOST RECENT ADMINISTRATION: 09-AUG-2007
     Route: 042
     Dates: start: 20070802
  2. CARBOPLATIN [Suspect]
     Indication: NON-SMALL CELL LUNG CANCER
     Dosage: AUC 5; FIRST INFUSION AND MOST RECENT INFUSION: 2-AUG-2007
     Route: 042
     Dates: start: 20070802
  3. GEMCITABINE HCL [Suspect]
     Indication: NON-SMALL CELL LUNG CANCER
     Dosage: FIRST INFUSION: 02-AUG-2007; MOST RECENT INFUSION: 09-AUG-2007
     Route: 042
     Dates: start: 20070802

REACTIONS (1)
  - COLLAPSE OF LUNG [None]
